FAERS Safety Report 7946163-2 (Version None)
Quarter: 2011Q4

REPORT INFORMATION
  Report Type: 
  Country: None (occurrence: None)
  Receive Date: 20111129
  Receipt Date: 20111117
  Transmission Date: 20120403
  Serious: Yes (Other)
  Sender: FDA-Public Use
  Company Number: GB-GLAXOSMITHKLINE-B0764350A

PATIENT

DRUGS (1)
  1. ROPINIROLE [Suspect]
     Indication: PARKINSON'S DISEASE
     Dosage: 2TAB THREE TIMES PER DAY
     Route: 048

REACTIONS (3)
  - DRUG LEVEL FLUCTUATING [None]
  - DRUG INEFFECTIVE [None]
  - PARKINSON'S DISEASE [None]
